FAERS Safety Report 10170797 (Version 2)
Quarter: 2014Q2

REPORT INFORMATION
  Report Type: Spontaneous
  Country: BR (occurrence: BR)
  Receive Date: 20140514
  Receipt Date: 20140519
  Transmission Date: 20141212
  Serious: Yes (Other)
  Sender: FDA-Public Use
  Company Number: BR-PFIZER INC-2014127989

PATIENT
  Age: 49 Year
  Sex: Male
  Weight: 90 kg

DRUGS (8)
  1. LYRICA [Suspect]
     Indication: SPINAL PAIN
     Dosage: 1 CAPSULE STRENGTH 150 MG, 3X/DAY
     Route: 048
  2. LYRICA [Suspect]
     Indication: SPINAL CORD COMPRESSION
  3. ETNA [Concomitant]
     Indication: SPINAL PAIN
     Dosage: UNK
  4. ETNA [Concomitant]
     Indication: SPINAL CORD COMPRESSION
  5. ATENOLOL [Concomitant]
     Indication: PAIN
     Dosage: 1 CP A DAY
  6. HYDROCHLOROTHIAZIDE [Concomitant]
     Indication: PAIN
     Dosage: 1 CP A DAY
  7. ENALAPRIL [Concomitant]
     Indication: PAIN
     Dosage: 2 CP A DAY
  8. PARATRAM [Concomitant]
     Indication: PAIN
     Dosage: 1 CP, 3X/DAY

REACTIONS (4)
  - Spinal disorder [Unknown]
  - Weight increased [Unknown]
  - Drug ineffective [Unknown]
  - Swelling [Unknown]
